FAERS Safety Report 24603520 (Version 1)
Quarter: 2024Q4

REPORT INFORMATION
  Report Type: Spontaneous
  Country: US (occurrence: US)
  Receive Date: 20241111
  Receipt Date: 20241111
  Transmission Date: 20250114
  Serious: No
  Sender: PERRIGO
  Company Number: US-PERRIGO-24US008041

PATIENT
  Sex: Male
  Weight: 95.238 kg

DRUGS (1)
  1. NICOTINE POLACRILEX [Suspect]
     Active Substance: NICOTINE
     Indication: Smoking cessation therapy
     Dosage: UNKNOWN, UNKNOWN
     Route: 002
     Dates: start: 2022, end: 2024

REACTIONS (5)
  - Feeling cold [Recovered/Resolved]
  - Genital burning sensation [Recovered/Resolved]
  - Blood testosterone decreased [Unknown]
  - Genital atrophy [Not Recovered/Not Resolved]
  - Drug ineffective [Unknown]

NARRATIVE: CASE EVENT DATE: 20220101
